FAERS Safety Report 18694956 (Version 2)
Quarter: 2021Q1

REPORT INFORMATION
  Report Type: Spontaneous
  Country: ES (occurrence: ES)
  Receive Date: 20210104
  Receipt Date: 20210330
  Transmission Date: 20210419
  Serious: Yes (Hospitalization)
  Sender: FDA-Public Use
  Company Number: ES-TEVA-2020-ES-1865664

PATIENT
  Age: 90 Year
  Sex: Female

DRUGS (1)
  1. AMOXICILINA /ACIDO CLAVULANICO 500 MG/125 MG COMPRIMIDOS RECUBIERTOS C [Suspect]
     Active Substance: AMOXICILLIN\CLAVULANIC ACID
     Indication: SKIN ULCER
     Dosage: 3 DOSAGE FORMS DAILY; 1?1?1
     Route: 048
     Dates: start: 20201119, end: 20201125

REACTIONS (1)
  - Hepatitis cholestatic [Recovering/Resolving]

NARRATIVE: CASE EVENT DATE: 20201120
